FAERS Safety Report 18050547 (Version 1)
Quarter: 2020Q3

REPORT INFORMATION
  Report Type: Spontaneous
  Country: RO (occurrence: RO)
  Receive Date: 20200721
  Receipt Date: 20200721
  Transmission Date: 20201103
  Serious: Yes (Other)
  Sender: FDA-Public Use
  Company Number: RO-MYLANLABS-2020M1064505

PATIENT
  Sex: Female

DRUGS (8)
  1. DIAZEPAM. [Suspect]
     Active Substance: DIAZEPAM
     Indication: PSYCHOTIC DISORDER
     Dosage: 10, IN THE EVENING
     Route: 065
  2. GERODORM [Suspect]
     Active Substance: CINOLAZEPAM
     Indication: SCHIZOPHRENIA
     Dosage: 1/2
     Route: 065
  3. OLANZAPINE. [Suspect]
     Active Substance: OLANZAPINE
     Indication: SCHIZOPHRENIA
     Dosage: 5 MILLIGRAM, IN THE EVENING
     Route: 065
  4. ROMPARKIN [Suspect]
     Active Substance: TRIHEXYPHENIDYL
     Indication: SCHIZOPHRENIA
     Dosage: 2 MILLIGRAM, IN THE EVENING
     Route: 065
  5. DEPAKIN [Suspect]
     Active Substance: VALPROATE SODIUM
     Indication: SCHIZOPHRENIA
     Dosage: 150, IN THE EVENING
     Route: 065
  6. ROMPARKIN [Suspect]
     Active Substance: TRIHEXYPHENIDYL
     Indication: PSYCHOTIC DISORDER
     Dosage: 2 MILLIGRAM, IN THE MORNING AND IN THE EVENING
     Route: 065
  7. DEPAKIN [Suspect]
     Active Substance: VALPROATE SODIUM
     Indication: PSYCHOTIC DISORDER
     Dosage: 300, IN THE MORNING
     Route: 065
  8. RISPERIDONE. [Suspect]
     Active Substance: RISPERIDONE
     Indication: PSYCHOTIC DISORDER
     Dosage: 2 MILLILITER, IN THE MORNING AND IN THE EVENING
     Route: 065

REACTIONS (5)
  - Dysstasia [Unknown]
  - Sedation [Unknown]
  - Drug ineffective [Unknown]
  - Aphasia [Unknown]
  - Gait disturbance [Unknown]
